FAERS Safety Report 8842893 (Version 4)
Quarter: 2013Q4

REPORT INFORMATION
  Report Type: Spontaneous
  Country: US (occurrence: US)
  Receive Date: 20121016
  Receipt Date: 20131022
  Transmission Date: 20140711
  Serious: No
  Sender: FDA-Public Use
  Company Number: US-ASTRAZENECA-2012SE77049

PATIENT
  Age: 56 Year
  Sex: Male

DRUGS (6)
  1. SEROQUEL [Suspect]
     Indication: SLEEP DISORDER
     Route: 048
  2. SEROQUEL [Suspect]
     Indication: DEPRESSION
     Route: 048
  3. SEROQUEL [Suspect]
     Indication: SLEEP DISORDER
     Route: 048
  4. SEROQUEL [Suspect]
     Indication: DEPRESSION
     Route: 048
  5. SEROQUEL [Suspect]
     Indication: SLEEP DISORDER
     Route: 048
     Dates: start: 2006
  6. SEROQUEL [Suspect]
     Indication: DEPRESSION
     Route: 048
     Dates: start: 2006

REACTIONS (12)
  - Abdominal discomfort [Unknown]
  - Adverse event [Unknown]
  - Agitation [Unknown]
  - Discomfort [Unknown]
  - Feeling jittery [Unknown]
  - Malaise [Unknown]
  - Insomnia [Unknown]
  - Hot flush [Unknown]
  - Feeling abnormal [Unknown]
  - Thinking abnormal [Unknown]
  - Tremor [Unknown]
  - Drug dose omission [Unknown]
